FAERS Safety Report 7356325-3 (Version None)
Quarter: 2011Q1

REPORT INFORMATION
  Report Type: 
  Country: None (occurrence: None)
  Receive Date: 20110308
  Receipt Date: 20110228
  Transmission Date: 20110831
  Serious: Yes (Other)
  Sender: FDA-Public Use
  Company Number: 840525

PATIENT
  Age: 10 Year
  Sex: Male
  Weight: 34 kg

DRUGS (3)
  1. POTASSIUM CHLORIDE FOR INJ, USP (POTASSIUM CHLORIDE) [Concomitant]
  2. DEXAMETHASONE [Concomitant]
  3. ACYCLOVIR [Suspect]
     Indication: PRODUCT USED FOR UNKNOWN INDICATION
     Dosage: 350MG, 1 EVERY 9 HOUR(S) INTRAVENOUS (NOT OTHERWISE SPECIFIED)
     Route: 042

REACTIONS (3)
  - INJECTION SITE VESICLES [None]
  - INJECTION SITE SWELLING [None]
  - INJECTION SITE PAIN [None]
